FAERS Safety Report 5509578-8 (Version None)
Quarter: 2007Q4

REPORT INFORMATION
  Report Type: 
  Country: None (occurrence: None)
  Receive Date: 20071106
  Receipt Date: 20071027
  Transmission Date: 20080405
  Serious: Yes (Hospitalization)
  Sender: FDA-Public Use
  Company Number: GXKR2007DE09189

PATIENT
  Age: 65 Year
  Sex: Female
  Weight: 63 kg

DRUGS (6)
  1. METOHEXAL (NGX)(METOPROLOL) UNKNOWN [Suspect]
     Indication: BREAST CANCER
     Dosage: 69.6 MG EVERY 21 DAYS, INTRAVENOUS
     Route: 042
     Dates: start: 20041026, end: 20041228
  2. CYCLOPHOSPHAMIDE [Suspect]
     Indication: BREAST CANCER
     Dosage: 69.6 MG EVERY 21 DAYS, INTRAVENOUS
     Route: 042
     Dates: start: 20041026, end: 20041228
  3. FLUOROURACIL [Suspect]
     Indication: BREAST CANCER
     Dosage: 1044, EVERY 21 D, INTRAVENOUS
     Route: 042
     Dates: start: 20041026, end: 20041228
  4. DEXAMETHASONE [Suspect]
     Indication: PROPHYLAXIS
     Dosage: 8 MG EVERY 21 DAYS, INTRAVENOUS
     Route: 042
     Dates: start: 20041026, end: 20041228
  5. NANDRAN() [Suspect]
     Indication: NAUSEA
     Dosage: 5 MG, EVERY 21 D, INTRAVENOUS
     Route: 042
     Dates: start: 20041026, end: 20041228
  6. UROMITEXANE(UROMITEXANE) [Suspect]
     Indication: PROPHYLAXIS
     Dosage: 2X200 MG, EVERY 21 D, INTRAVENOUS
     Route: 042
     Dates: start: 20041026, end: 20041228

REACTIONS (3)
  - FALL [None]
  - HEAD INJURY [None]
  - SKIN LACERATION [None]
